FAERS Safety Report 5349745-X (Version None)
Quarter: 2007Q2

REPORT INFORMATION
  Report Type: 
  Country: None (occurrence: None)
  Receive Date: 20070607
  Receipt Date: 20070526
  Transmission Date: 20071010
  Serious: Yes (Other)
  Sender: FDA-Public Use
  Company Number: US-PFIZER INC-2007044604

PATIENT
  Age: 81 Year
  Sex: Male
  Weight: 70 kg

DRUGS (5)
  1. REVATIO [Suspect]
     Indication: PULMONARY HYPERTENSION
  2. COREG [Concomitant]
     Route: 048
  3. LASIX [Concomitant]
     Route: 048
  4. PRILOSEC [Concomitant]
     Route: 048
  5. FERROUS SULFATE [Concomitant]
     Route: 048

REACTIONS (8)
  - ABDOMINAL DISTENSION [None]
  - COLON CANCER [None]
  - DRUG INEFFECTIVE [None]
  - DYSPNOEA [None]
  - GALLBLADDER CANCER [None]
  - HEPATIC NEOPLASM MALIGNANT [None]
  - METASTASES TO ABDOMINAL CAVITY [None]
  - WEIGHT DECREASED [None]
